FAERS Safety Report 7415512-6 (Version None)
Quarter: 2011Q2

REPORT INFORMATION
  Report Type: 
  Country: None (occurrence: None)
  Receive Date: 20110414
  Receipt Date: 20110401
  Transmission Date: 20111010
  Serious: Yes (Death)
  Sender: FDA-Public Use
  Company Number: US-ACTELION-A-NJ2011-46656

PATIENT

DRUGS (11)
  1. SYNAGIS [Concomitant]
  2. DIURIL [Concomitant]
  3. ATROVENT [Concomitant]
  4. POLY-VI-SOL [Concomitant]
  5. VITAMIN D [Concomitant]
  6. TRACLEER [Suspect]
     Indication: PULMONARY ARTERIAL HYPERTENSION
     Dosage: 4 MG, BID
     Route: 048
     Dates: start: 20101025, end: 20110306
  7. ALBUTEROL [Concomitant]
  8. FLOVENT [Concomitant]
  9. POTASSIUM CHLORIDE [Concomitant]
  10. ALDACTONE [Concomitant]
  11. ASPIRIN [Concomitant]

REACTIONS (5)
  - FOOD INTOLERANCE [None]
  - PYREXIA [None]
  - CYANOSIS [None]
  - CARDIAC ARREST [None]
  - ABDOMINAL DISTENSION [None]
